FAERS Safety Report 21687755 (Version 2)
Quarter: 2023Q1

REPORT INFORMATION
  Report Type: Spontaneous
  Country: US (occurrence: None)
  Receive Date: 20221206
  Receipt Date: 20230118
  Transmission Date: 20230417
  Serious: No
  Sender: FDA-Public Use
  Company Number: 2022A387382

PATIENT
  Age: 29568 Day
  Sex: Female
  Weight: 60.8 kg

DRUGS (1)
  1. SYMBICORT [Suspect]
     Active Substance: BUDESONIDE\FORMOTEROL FUMARATE DIHYDRATE
     Indication: Asthma
     Dosage: 80/4.5MCG 1 OR 2 PUFFS TWO TIMES A DAY
     Route: 055

REACTIONS (5)
  - Dry mouth [Unknown]
  - Influenza [Unknown]
  - Off label use [Unknown]
  - Device malfunction [Unknown]
  - Device delivery system issue [Unknown]

NARRATIVE: CASE EVENT DATE: 20221121
